FAERS Safety Report 10065209 (Version 1)
Quarter: 2014Q1

REPORT INFORMATION
  Report Type: Spontaneous
  Country: US (occurrence: None)
  Receive Date: 20140328
  Receipt Date: 20140328
  Transmission Date: 20141002
  Serious: No
  Sender: FDA-Public Use
  Company Number: CABO-13003833

PATIENT
  Age: 25 Year
  Sex: Female

DRUGS (1)
  1. COMETRIQ (CABOZANTINIB) CAPSULE [Suspect]
     Indication: RENAL CANCER
     Route: 048
     Dates: start: 20131122, end: 20131212

REACTIONS (5)
  - Full blood count decreased [None]
  - Abdominal pain upper [None]
  - Headache [None]
  - Hair colour changes [None]
  - Off label use [None]
